FAERS Safety Report 17035345 (Version 1)
Quarter: 2019Q4

REPORT INFORMATION
  Report Type: Spontaneous
  Country: GB (occurrence: GB)
  Receive Date: 20191115
  Receipt Date: 20191115
  Transmission Date: 20200122
  Serious: Yes (Other)
  Sender: FDA-Public Use
  Company Number: GB-TEVA-2019-GB-1136992

PATIENT
  Age: 7 Year
  Sex: Male
  Weight: 30.1 kg

DRUGS (5)
  1. CARBAMAZEPINE. [Suspect]
     Active Substance: CARBAMAZEPINE
     Dosage: 10MG/KG, TWICE DAILY.
     Route: 048
     Dates: start: 20171118, end: 20171128
  2. MELATONIN [Concomitant]
     Active Substance: MELATONIN
  3. ALIMEMAZINE [Concomitant]
     Active Substance: TRIMEPRAZINE
  4. MOVICOL [Concomitant]
     Active Substance: POLYETHYLENE GLYCOL 3350\POTASSIUM CHLORIDE\SODIUM BICARBONATE\SODIUM CHLORIDE
  5. SODIUM VALPROATE [Suspect]
     Active Substance: VALPROATE SODIUM
     Dosage: 400 MG 1 DAYS
     Route: 048
     Dates: start: 20171128, end: 20171130

REACTIONS (4)
  - Thrombocytopenia [Recovered/Resolved]
  - Neutropenia [Recovered/Resolved]
  - Somnolence [Recovered/Resolved]
  - Haemoglobin decreased [Recovered/Resolved]

NARRATIVE: CASE EVENT DATE: 20171118
